FAERS Safety Report 6898270-3 (Version None)
Quarter: 2010Q3

REPORT INFORMATION
  Report Type: 
  Country: None (occurrence: None)
  Receive Date: 20100729
  Receipt Date: 20100726
  Transmission Date: 20110219
  Serious: Yes (Hospitalization)
  Sender: FDA-Public Use
  Company Number: 1000015164

PATIENT
  Age: 56 Year
  Sex: Male

DRUGS (5)
  1. CELEXA [Suspect]
     Indication: ANXIETY
     Dosage: 40 MG (40 MG, 1 IN 1 D), ORAL
     Route: 048
     Dates: start: 20020101
  2. CELEXA [Suspect]
     Indication: DEPRESSION
     Dosage: 40 MG (40 MG, 1 IN 1 D), ORAL
     Route: 048
     Dates: start: 20020101
  3. METHADONE HCL [Suspect]
     Indication: BACK INJURY
     Dosage: (110 MG), ORAL
     Route: 048
  4. GABAPENTIN [Suspect]
     Indication: DEPRESSION
     Dosage: (530 MG), ORAL
     Route: 048
  5. KLONOPIN [Suspect]
     Indication: SLEEP DISORDER
     Dosage: (3 MG), ORAL
     Route: 048

REACTIONS (3)
  - BLOOD PRESSURE INCREASED [None]
  - DISORIENTATION [None]
  - TREATMENT NONCOMPLIANCE [None]
